FAERS Safety Report 4884038-6 (Version None)
Quarter: 2006Q1

REPORT INFORMATION
  Report Type: 
  Country: None (occurrence: None)
  Receive Date: 20060117
  Receipt Date: 20060109
  Transmission Date: 20060701
  Serious: Yes (Life-Threatening, Hospitalization)
  Sender: FDA-Public Use
  Company Number: MK200601-0089-1

PATIENT
  Age: 8 Month

DRUGS (1)
  1. ACETAMINOPHEN W/ CODEINE TAB [Suspect]
     Indication: PYREXIA
     Dosage: 2 ML, ONE TIME, PO
     Route: 048

REACTIONS (8)
  - APNOEA [None]
  - COUGH [None]
  - CYANOSIS [None]
  - HYPOTONIA [None]
  - MENTAL STATUS CHANGES [None]
  - PNEUMONIA [None]
  - RESPIRATORY DISTRESS [None]
  - WRONG DRUG ADMINISTERED [None]
